FAERS Safety Report 25960110 (Version 1)
Quarter: 2025Q4

REPORT INFORMATION
  Report Type: Spontaneous
  Country: US (occurrence: US)
  Receive Date: 20251026
  Receipt Date: 20251026
  Transmission Date: 20260117
  Serious: No
  Sender: SANOFI AVENTIS
  Company Number: US-SA-2025SA315294

PATIENT
  Sex: Female

DRUGS (2)
  1. DUPIXENT [Suspect]
     Active Substance: DUPILUMAB
     Indication: Dermatitis atopic
     Dosage: 300 MG, QOW
     Route: 058
     Dates: start: 202211
  2. BRUKINSA [Concomitant]
     Active Substance: ZANUBRUTINIB
     Indication: Chemotherapy
     Dosage: UNK

REACTIONS (2)
  - Injection site bruising [Unknown]
  - Condition aggravated [Unknown]
